FAERS Safety Report 17671379 (Version 1)
Quarter: 2020Q2

REPORT INFORMATION
  Report Type: Spontaneous
  Country: IT (occurrence: IT)
  Receive Date: 20200415
  Receipt Date: 20200415
  Transmission Date: 20200713
  Serious: Yes (Other)
  Sender: FDA-Public Use
  Company Number: IT-MYLANLABS-2019M1126421

PATIENT
  Age: 62 Year
  Sex: Female

DRUGS (7)
  1. TRASTUZUMAB. [Suspect]
     Active Substance: TRASTUZUMAB
     Dosage: 13 CYCLES(INTER-CYCLE PAUSES OF 21 DAYS
     Route: 065
  2. TRASTUZUMAB. [Suspect]
     Active Substance: TRASTUZUMAB
     Dosage: 4 MILLIGRAM/KILOGRAM(FOR FIRST WEEK)
     Route: 065
  3. ENDOXAN                            /00021102/ [Suspect]
     Active Substance: CYCLOPHOSPHAMIDE
     Dosage: 600 MILLIGRAM/SQ. METER,  4 CYCLES (WITH AN INTER-CYCLE INTERVAL OF 21 DAYS)
     Route: 065
  4. TRASTUZUMAB. [Suspect]
     Active Substance: TRASTUZUMAB
     Dosage: 2 MILLIGRAM/KILOGRAM,QW (FOR 11 CYCLES)
     Route: 065
  5. EPIRUBICIN [Suspect]
     Active Substance: EPIRUBICIN
     Dosage: 90 MG/M2, 4 CYCLES (WITH AN INTER-CYCLE INTERVAL OF 21 DAYS)
     Route: 065
  6. CYCLOPHOSPHAMIDE. [Concomitant]
     Active Substance: CYCLOPHOSPHAMIDE
     Indication: BREAST CANCER
     Dosage: FOUR CYCLES ADMINISTERED WITH EPIRUBICIN, WITH AN INTER-CYCLE INTERVAL OF 21 DAYS
  7. PACLITAXEL. [Suspect]
     Active Substance: PACLITAXEL
     Dosage: 80 MILLIGRAM/SQ. METER, 24 CYCLE
     Route: 065

REACTIONS (2)
  - Cardiac dysfunction [Recovering/Resolving]
  - Cardiotoxicity [Unknown]
